FAERS Safety Report 7458042-8 (Version None)
Quarter: 2011Q2

REPORT INFORMATION
  Report Type: 
  Country: None (occurrence: None)
  Receive Date: 20110504
  Receipt Date: 20110420
  Transmission Date: 20111010
  Serious: Yes (Hospitalization)
  Sender: FDA-Public Use
  Company Number: US-JNJFOC-20110410595

PATIENT
  Sex: Male
  Weight: 65.1 kg

DRUGS (8)
  1. PROTONIX [Concomitant]
  2. VITAMIN D [Concomitant]
  3. CALCIUM [Concomitant]
  4. PROBIOTICS [Concomitant]
  5. PREDNISONE [Concomitant]
  6. REMICADE [Suspect]
     Indication: CROHN'S DISEASE
     Route: 042
  7. CIMZIA [Concomitant]
  8. IRON [Concomitant]

REACTIONS (1)
  - CROHN'S DISEASE [None]
